FAERS Safety Report 6637950-1 (Version None)
Quarter: 2010Q1

REPORT INFORMATION
  Report Type: 
  Country: None (occurrence: None)
  Receive Date: 20100317
  Receipt Date: 20100311
  Transmission Date: 20100710
  Serious: Yes (Life-Threatening, Hospitalization, Other)
  Sender: FDA-Public Use
  Company Number: PHHY2009CA55911

PATIENT
  Sex: Female
  Weight: 63.946 kg

DRUGS (4)
  1. ACLASTA/ZOLEDRONATE T29581+A+ [Suspect]
     Indication: OSTEOPOROSIS
     Dosage: 5MG/100 ML/ YEARLY
     Dates: start: 20090728
  2. DIDRONEL [Concomitant]
     Dosage: 400 MG/ DAILY
  3. EVISTA [Concomitant]
     Dosage: 670 MG DAILY
  4. MIACALCIN [Concomitant]
     Dosage: 200 UI DAILY

REACTIONS (5)
  - BONE PAIN [None]
  - FALL [None]
  - FEELING ABNORMAL [None]
  - PELVIC FRACTURE [None]
  - PYREXIA [None]
